FAERS Safety Report 9636153 (Version 2)
Quarter: 2014Q2

REPORT INFORMATION
  Report Type: Spontaneous
  Country: BR (occurrence: BR)
  Receive Date: 20131021
  Receipt Date: 20140627
  Transmission Date: 20141212
  Serious: Yes (Other)
  Sender: FDA-Public Use
  Company Number: BR-AMGEN-BRASP2013073463

PATIENT
  Age: 56 Year
  Sex: Female
  Weight: 70 kg

DRUGS (6)
  1. ENBREL [Suspect]
     Indication: RHEUMATOID ARTHRITIS
     Dosage: 50 MG, ONCE WEEKLY
     Route: 058
     Dates: start: 2012, end: 20130616
  2. ENBREL [Suspect]
     Dosage: 50 MG, WEEKLY
     Route: 058
     Dates: start: 20130721
  3. PREDNISONE [Concomitant]
     Indication: RHEUMATOID ARTHRITIS
     Dosage: 5 MG, 2X/DAY
     Dates: start: 2006
  4. DICLAC                             /00372302/ [Concomitant]
     Indication: RHEUMATOID ARTHRITIS
     Dosage: UNK
     Dates: start: 2013
  5. MIOSAN [Concomitant]
     Dosage: UNK
  6. TORAGESIC [Concomitant]
     Indication: ANALGESIC THERAPY
     Dosage: UNK

REACTIONS (14)
  - Diabetes mellitus [Unknown]
  - Hernia [Unknown]
  - Pain [Unknown]
  - Glycosylated haemoglobin increased [Unknown]
  - Fatigue [Unknown]
  - Bone pain [Unknown]
  - Pain in extremity [Unknown]
  - Asthenia [Unknown]
  - Musculoskeletal discomfort [Unknown]
  - Mobility decreased [Unknown]
  - Peripheral swelling [Unknown]
  - Joint swelling [Unknown]
  - Muscular weakness [Unknown]
  - Drug ineffective [Unknown]
